FAERS Safety Report 23671769 (Version 5)
Quarter: 2024Q2

REPORT INFORMATION
  Report Type: Report from Study
  Country: BR (occurrence: BR)
  Receive Date: 20240326
  Receipt Date: 20240617
  Transmission Date: 20240715
  Serious: Yes (Hospitalization, Other)
  Sender: FDA-Public Use
  Company Number: BR-AMGEN-BRASL2023149005

PATIENT
  Age: 40 Year
  Sex: Female

DRUGS (10)
  1. VECTIBIX [Suspect]
     Active Substance: PANITUMUMAB
     Indication: Gastrointestinal cancer metastatic
     Dosage: UNK, EVERY 15 DAYS (INFUSION)
     Route: 042
     Dates: start: 20221010
  2. VECTIBIX [Suspect]
     Active Substance: PANITUMUMAB
     Indication: Colorectal cancer metastatic
     Dosage: UNK UNK, Q3WK (CATHETER)
     Route: 042
  3. VECTIBIX [Suspect]
     Active Substance: PANITUMUMAB
     Dosage: UNK, EVERY 15 DAYS
     Route: 042
     Dates: end: 202405
  4. TRAMADOL [Concomitant]
     Active Substance: TRAMADOL\TRAMADOL HYDROCHLORIDE
     Indication: Pain
     Dosage: UNK
  5. METAMIZOLE [Concomitant]
     Active Substance: METAMIZOLE
     Indication: Pain
     Dosage: UNK, 40 DROPS EVERY 4 HOURS
  6. MORPHINE HYDROCHLORIDE [Concomitant]
     Active Substance: MORPHINE HYDROCHLORIDE
     Indication: Product used for unknown indication
     Dosage: 100 MILLIGRAM, G HALF A TABLET EVERY 4 HOURS
  7. CARVEDILOL [Concomitant]
     Active Substance: CARVEDILOL
     Indication: Product used for unknown indication
     Dosage: 3.125 MILLIGRAM, Q12H, 1 TABLET EVERY 12 HOURS
  8. BROMOPRIDA [Concomitant]
     Indication: Nausea
     Dosage: UNK
  9. LOPERAMIDE HYDROCHLORIDE [Concomitant]
     Active Substance: LOPERAMIDE HYDROCHLORIDE
     Indication: Diarrhoea
     Dosage: UNK
  10. CAPECITABINE [Concomitant]
     Active Substance: CAPECITABINE
     Dosage: 500 MILLIGRAM 2 TABLETS IN THE MORNING AND 3 TABLETS AT NIGHT FOR 14 DAYS AND FOR 7 DAYS AND RETURN
     Route: 048

REACTIONS (21)
  - Malaise [Not Recovered/Not Resolved]
  - Cholecystitis [Recovering/Resolving]
  - Hepatic neoplasm [Recovering/Resolving]
  - Pulmonary oedema [Not Recovered/Not Resolved]
  - Blood potassium decreased [Recovering/Resolving]
  - Blood magnesium decreased [Recovering/Resolving]
  - Dyspnoea [Not Recovered/Not Resolved]
  - Cough [Not Recovered/Not Resolved]
  - Mouth ulceration [Recovering/Resolving]
  - Drug ineffective [Recovering/Resolving]
  - Skin lesion [Recovering/Resolving]
  - Dry skin [Recovering/Resolving]
  - Skin exfoliation [Not Recovered/Not Resolved]
  - Acne [Not Recovered/Not Resolved]
  - Aphthous ulcer [Not Recovered/Not Resolved]
  - Nausea [Recovered/Resolved]
  - Diarrhoea [Recovering/Resolving]
  - Paronychia [Recovering/Resolving]
  - Dysphonia [Recovering/Resolving]
  - Post procedural haemorrhage [Recovering/Resolving]
  - Off label use [Unknown]

NARRATIVE: CASE EVENT DATE: 20230101
